FAERS Safety Report 16736680 (Version 4)
Quarter: 2019Q4

REPORT INFORMATION
  Report Type: Spontaneous
  Country: US (occurrence: US)
  Receive Date: 20190823
  Receipt Date: 20191223
  Transmission Date: 20200122
  Serious: Yes (Other)
  Sender: FDA-Public Use
  Company Number: US-PFIZER INC-2019359157

PATIENT
  Age: 54 Year
  Sex: Female

DRUGS (1)
  1. NICOTROL [Suspect]
     Active Substance: NICOTINE
     Indication: SMOKING CESSATION THERAPY
     Dosage: QUANTITY FOR 90 DAYS: 168 EACH

REACTIONS (3)
  - Tobacco user [Unknown]
  - Neoplasm malignant [Unknown]
  - Anxiety [Unknown]
